FAERS Safety Report 25608009 (Version 2)
Quarter: 2025Q4

REPORT INFORMATION
  Report Type: Report from Study
  Country: US (occurrence: US)
  Receive Date: 20250725
  Receipt Date: 20251007
  Transmission Date: 20260118
  Serious: Yes (Other)
  Sender: ABBVIE
  Company Number: US-ABBVIE-6385728

PATIENT
  Age: 65 Year
  Sex: Female
  Weight: 88.451 kg

DRUGS (4)
  1. SKYRIZI [Suspect]
     Active Substance: RISANKIZUMAB-RZAA
     Indication: Psoriasis
     Dosage: TIME INTERVAL: TOTAL: STRENGTH: 150MG/ML, WEEK 0 DOSE
     Route: 058
     Dates: start: 20220810, end: 20220810
  2. SKYRIZI [Suspect]
     Active Substance: RISANKIZUMAB-RZAA
     Dosage: TIME INTERVAL: TOTAL: STRENGTH: 150MG/ML, WEEK 04 DOSE, AND EVERY 12 WEEKS THEREAFTER
     Route: 058
     Dates: start: 202209, end: 202209
  3. SKYRIZI [Suspect]
     Active Substance: RISANKIZUMAB-RZAA
     Dosage: STRENGTH: 150MG/ML, RESTARTED
     Route: 058
     Dates: start: 20250529
  4. SKYRIZI [Suspect]
     Active Substance: RISANKIZUMAB-RZAA
     Dosage: STRENGTH: 150MG/ML
     Route: 058

REACTIONS (5)
  - Macular degeneration [Unknown]
  - Psoriasis [Recovering/Resolving]
  - Hypertension [Unknown]
  - Burning sensation [Recovering/Resolving]
  - Pain of skin [Recovered/Resolved]

NARRATIVE: CASE EVENT DATE: 20240101
